FAERS Safety Report 6483424-0 (Version None)
Quarter: 2009Q4

REPORT INFORMATION
  Report Type: 
  Country: None (occurrence: None)
  Receive Date: 20091209
  Receipt Date: 20091127
  Transmission Date: 20100525
  Serious: Yes (Hospitalization)
  Sender: FDA-Public Use
  Company Number: FR-PFIZER INC-2009303276

PATIENT
  Age: 73 Year
  Sex: Male

DRUGS (3)
  1. LYRICA [Suspect]
     Dosage: UNK
     Route: 048
     Dates: start: 20091028, end: 20091031
  2. VANCOMYCIN [Suspect]
     Indication: INTERVERTEBRAL DISCITIS
     Dosage: 1 G, 2X/DAY
     Route: 041
     Dates: start: 20091001
  3. VANCOMYCIN [Suspect]
     Dosage: 1.5 G, 2X/DAY
     Route: 041
     Dates: end: 20091103

REACTIONS (4)
  - EOSINOPHILIA [None]
  - HEPATIC ENZYME INCREASED [None]
  - PANCREATIC ENZYMES INCREASED [None]
  - RASH MACULO-PAPULAR [None]
